FAERS Safety Report 24183847 (Version 14)
Quarter: 2025Q1

REPORT INFORMATION
  Report Type: Report from Study
  Country: AR (occurrence: AR)
  Receive Date: 20240807
  Receipt Date: 20250217
  Transmission Date: 20250409
  Serious: Yes (Other)
  Sender: NOVARTIS
  Company Number: AR-002147023-NVSC2024AR144931

PATIENT
  Age: 73 Year
  Sex: Female

DRUGS (9)
  1. KISQALI [Suspect]
     Active Substance: RIBOCICLIB
     Indication: Breast cancer metastatic
     Route: 065
     Dates: start: 20240517
  2. KISQALI [Suspect]
     Active Substance: RIBOCICLIB
     Route: 048
     Dates: start: 20240610
  3. KISQALI [Suspect]
     Active Substance: RIBOCICLIB
     Dosage: 600 MG, QD
     Route: 048
     Dates: start: 20240611
  4. KISQALI [Suspect]
     Active Substance: RIBOCICLIB
     Route: 048
     Dates: start: 20240718
  5. KISQALI [Suspect]
     Active Substance: RIBOCICLIB
     Route: 048
  6. KISQALI [Suspect]
     Active Substance: RIBOCICLIB
     Route: 048
     Dates: start: 20241007
  7. LETROZOLE [Suspect]
     Active Substance: LETROZOLE
     Indication: Breast cancer metastatic
     Dosage: 1 DOSAGE FORM, QD
     Route: 048
     Dates: start: 20240611
  8. LETROZOLE [Suspect]
     Active Substance: LETROZOLE
     Indication: Gastrointestinal carcinoma
     Dosage: 1 DOSAGE FORM, QD
     Route: 048
     Dates: start: 20241007
  9. IRON [Concomitant]
     Active Substance: IRON
     Indication: Product used for unknown indication
     Dosage: 1 DOSAGE FORM, QD
     Route: 065

REACTIONS (18)
  - Stoma site irritation [Unknown]
  - Stoma site inflammation [Unknown]
  - Visual impairment [Unknown]
  - Intestinal obstruction [Unknown]
  - Confusional state [Recovered/Resolved]
  - Stress [Unknown]
  - Mental fatigue [Unknown]
  - White blood cell count decreased [Recovering/Resolving]
  - Irritability [Recovered/Resolved]
  - Pulmonary mass [Unknown]
  - Infection [Unknown]
  - Nodule [Unknown]
  - Secretion discharge [Unknown]
  - Alopecia [Recovering/Resolving]
  - Weight increased [Unknown]
  - Malaise [Unknown]
  - Temperature intolerance [Recovered/Resolved]
  - Off label use [Unknown]

NARRATIVE: CASE EVENT DATE: 20240601
